FAERS Safety Report 24649738 (Version 2)
Quarter: 2024Q4

REPORT INFORMATION
  Report Type: Report from Study
  Country: US (occurrence: US)
  Receive Date: 20241121
  Receipt Date: 20241208
  Transmission Date: 20250115
  Serious: Yes (Other)
  Sender: ABBVIE
  Company Number: US-ABBVIE-6009880

PATIENT
  Age: 56 Year
  Sex: Female
  Weight: 112.49 kg

DRUGS (9)
  1. SKYRIZI [Suspect]
     Active Substance: RISANKIZUMAB-RZAA
     Indication: Psoriasis
     Route: 058
     Dates: start: 20230714
  2. VENLAFAXINE [Concomitant]
     Active Substance: VENLAFAXINE HYDROCHLORIDE
     Indication: Product used for unknown indication
  3. OMEPRAZOLE [Concomitant]
     Active Substance: OMEPRAZOLE
     Indication: Gastrointestinal disorder
  4. TRAMADOL [Concomitant]
     Active Substance: TRAMADOL
     Indication: Pain
  5. DICLOFENAC [Concomitant]
     Active Substance: DICLOFENAC
     Indication: Swelling
  6. OZEMPIC [Concomitant]
     Active Substance: SEMAGLUTIDE
     Indication: Type 2 diabetes mellitus
  7. TRAZODONE [Concomitant]
     Active Substance: TRAZODONE HYDROCHLORIDE
     Indication: Sleep disorder
  8. ROPINIROLE [Concomitant]
     Active Substance: ROPINIROLE
     Indication: Restless legs syndrome
  9. METHOCARBAMOL [Concomitant]
     Active Substance: METHOCARBAMOL
     Indication: Muscle relaxant therapy

REACTIONS (1)
  - Rotator cuff syndrome [Recovering/Resolving]

NARRATIVE: CASE EVENT DATE: 20230101
